FAERS Safety Report 11801544 (Version 4)
Quarter: 2015Q4

REPORT INFORMATION
  Report Type: Spontaneous
  Country: US (occurrence: US)
  Receive Date: 20151204
  Receipt Date: 20151231
  Transmission Date: 20160305
  Serious: Yes (Hospitalization)
  Sender: FDA-Public Use
  Company Number: US-UNITED THERAPEUTICS-UNT-2015-014967

PATIENT
  Age: 50 Year
  Sex: Female
  Weight: 72.56 kg

DRUGS (2)
  1. REMODULIN [Suspect]
     Active Substance: TREPROSTINIL
     Dosage: 0.022 ?G/KG, CONTINUING
     Route: 058
  2. REMODULIN [Suspect]
     Active Substance: TREPROSTINIL
     Indication: PULMONARY ARTERIAL HYPERTENSION
     Dosage: 0.0075 ?G/KG CONTINUING
     Route: 058
     Dates: start: 20151123

REACTIONS (7)
  - Respiratory rate increased [Unknown]
  - Breath sounds abnormal [Unknown]
  - Infusion site erythema [Recovering/Resolving]
  - Tremor [Unknown]
  - Infusion site pain [Recovering/Resolving]
  - Diarrhoea [Unknown]
  - Dyspnoea [Unknown]

NARRATIVE: CASE EVENT DATE: 20151123
